FAERS Safety Report 11645279 (Version 1)
Quarter: 2015Q4

REPORT INFORMATION
  Report Type: Spontaneous
  Country: US (occurrence: US)
  Receive Date: 20151020
  Receipt Date: 20151020
  Transmission Date: 20160304
  Serious: Yes (Other)
  Sender: FDA-Public Use
  Company Number: US-GLAXOSMITHKLINE-US2015148132

PATIENT
  Sex: Female

DRUGS (3)
  1. FLONASE ALLERGY RELIEF [Suspect]
     Active Substance: FLUTICASONE PROPIONATE
     Indication: ALLERGY TO ANIMAL
     Dosage: UNK
  2. CLARITIN [Suspect]
     Active Substance: LORATADINE
     Indication: ALLERGY TO ANIMAL
     Dosage: UNK
  3. ROOTOLOGY FORMULA NO.45 BREATHE FREE [Suspect]
     Active Substance: HERBALS\VITAMINS
     Indication: ALLERGY TO ANIMAL
     Dosage: UNK

REACTIONS (3)
  - Pneumonia [Unknown]
  - Drug ineffective for unapproved indication [Unknown]
  - Allergic bronchitis [Unknown]
